FAERS Safety Report 5525848-1 (Version None)
Quarter: 2007Q4

REPORT INFORMATION
  Report Type: 
  Country: None (occurrence: None)
  Receive Date: 20071126
  Receipt Date: 20071112
  Transmission Date: 20080405
  Serious: Yes (Life-Threatening, Other)
  Sender: FDA-Public Use
  Company Number: GB-RANBAXY-2007RR-11408

PATIENT

DRUGS (5)
  1. TERBINAFINE HCL [Suspect]
     Indication: TINEA CRURIS
     Dosage: 250 MG, UNK
     Route: 048
     Dates: start: 20071005, end: 20071008
  2. WARFARIN SODIUM [Suspect]
     Indication: ATRIAL FIBRILLATION
     Dosage: UNK
     Route: 048
     Dates: start: 20050101
  3. DAKTACORT [Concomitant]
     Indication: TINEA INFECTION
     Dosage: UNK
     Route: 061
     Dates: start: 20010101
  4. LANSOPRAZOLE 15 MG GASTRO-RESISTANT CAPSULES [Concomitant]
     Dosage: 15 MG, UNK
     Route: 048
     Dates: start: 20050101
  5. SIMVASTATIN 20MG TABLETS [Concomitant]
     Indication: BLOOD CHOLESTEROL INCREASED
     Dosage: 20 MG, UNK
     Route: 048
     Dates: start: 20060101

REACTIONS (4)
  - DRUG INTERACTION [None]
  - DRUG LEVEL INCREASED [None]
  - HAEMATURIA [None]
  - INTERNATIONAL NORMALISED RATIO INCREASED [None]
